FAERS Safety Report 9086594 (Version 1)
Quarter: 2013Q1

REPORT INFORMATION
  Report Type: Spontaneous
  Country: FR (occurrence: FR)
  Receive Date: 20130131
  Receipt Date: 20130131
  Transmission Date: 20140127
  Serious: Yes (Hospitalization)
  Sender: FDA-Public Use
  Company Number: FR-ROCHE-1185011

PATIENT
  Age: 47 Year
  Sex: Male

DRUGS (7)
  1. ROACTEMRA [Suspect]
     Indication: RHEUMATOID ARTHRITIS
     Route: 042
     Dates: start: 20101001, end: 20121126
  2. TAVANIC [Concomitant]
     Indication: TONSILLITIS
     Route: 048
     Dates: start: 20121201
  3. AUGMENTIN [Concomitant]
     Indication: TONSILLITIS
     Route: 048
     Dates: start: 20121201
  4. ELISOR [Concomitant]
     Indication: DYSLIPIDAEMIA
     Route: 048
  5. VOLTARENE (FRANCE) [Concomitant]
     Indication: RHEUMATOID ARTHRITIS
     Route: 048
  6. CONTRAMAL [Concomitant]
     Indication: RHEUMATOID ARTHRITIS
     Route: 048
  7. MOPRAL (FRANCE) [Concomitant]
     Route: 048

REACTIONS (3)
  - Laryngeal dyspnoea [Recovered/Resolved]
  - Febrile convulsion [Recovered/Resolved]
  - Epiglottitis [Recovered/Resolved]
